FAERS Safety Report 7888912-8 (Version None)
Quarter: 2011Q4

REPORT INFORMATION
  Report Type: 
  Country: None (occurrence: None)
  Receive Date: 20111103
  Receipt Date: 20111028
  Transmission Date: 20120403
  Serious: Yes (Life-Threatening, Hospitalization)
  Sender: FDA-Public Use
  Company Number: FR-JNJFOC-20111007362

PATIENT
  Sex: Male
  Weight: 80 kg

DRUGS (6)
  1. CIBADREX [Concomitant]
     Indication: CARDIAC DISORDER
     Route: 065
     Dates: start: 20030101
  2. BISOPROLOL FUMARATE [Concomitant]
     Indication: CARDIAC DISORDER
     Route: 065
  3. PLAVIX [Concomitant]
     Indication: CARDIAC DISORDER
     Route: 065
     Dates: start: 20070101
  4. ZYTIGA [Suspect]
     Indication: PROSTATE CANCER
     Route: 048
     Dates: start: 20110829, end: 20110930
  5. CORDARONE [Concomitant]
     Indication: CARDIAC DISORDER
     Route: 065
  6. ASPIRIN [Concomitant]
     Indication: CARDIAC DISORDER
     Route: 065
     Dates: start: 20030101

REACTIONS (3)
  - MYOCARDIAL ISCHAEMIA [None]
  - HYPOKINESIA [None]
  - CARDIAC FAILURE [None]
